FAERS Safety Report 17880756 (Version 1)
Quarter: 2020Q2

REPORT INFORMATION
  Report Type: Report from Study
  Country: US (occurrence: US)
  Receive Date: 20200610
  Receipt Date: 20200610
  Transmission Date: 20200714
  Serious: Yes (Death, Hospitalization, Other)
  Sender: FDA-Public Use
  Company Number: US-JNJFOC-20200537780

PATIENT

DRUGS (2)
  1. METHOTREXATE. [Concomitant]
     Active Substance: METHOTREXATE
  2. SIMPONI ARIA [Suspect]
     Active Substance: GOLIMUMAB
     Indication: PSORIATIC ARTHROPATHY
     Route: 042

REACTIONS (16)
  - Hepatitis acute [Fatal]
  - Colon cancer [Unknown]
  - Fatigue [Unknown]
  - Drug ineffective [Unknown]
  - Noninfective encephalitis [Unknown]
  - Pulmonary tuberculosis [Unknown]
  - Infected dermal cyst [Unknown]
  - Infusion related reaction [Unknown]
  - Pyelonephritis acute [Unknown]
  - Pneumonia [Unknown]
  - Gastric cancer [Unknown]
  - Periodontitis [Unknown]
  - Throat irritation [Unknown]
  - Empyema [Unknown]
  - Urinary tract infection [Unknown]
  - Drug specific antibody [Unknown]
